FAERS Safety Report 5166821-5 (Version None)
Quarter: 2006Q4

REPORT INFORMATION
  Report Type: 
  Country: None (occurrence: None)
  Receive Date: 20061207
  Receipt Date: 20061129
  Transmission Date: 20070319
  Serious: Yes (Other)
  Sender: FDA-Public Use
  Company Number: US-KINGPHARMUSA00001-K200601522

PATIENT
  Sex: Female

DRUGS (2)
  1. SONATA [Suspect]
     Dosage: 20 MG, 4 CAPSULES (5 MG),SINGLE
     Route: 048
     Dates: start: 20060401
  2. IMOVANE [Suspect]
     Dosage: 30 MG, UNK
     Route: 048
     Dates: start: 20060401

REACTIONS (1)
  - SUICIDE ATTEMPT [None]
